FAERS Safety Report 9319280 (Version 1)
Quarter: 2013Q2

REPORT INFORMATION
  Report Type: Spontaneous
  Country: US (occurrence: None)
  Receive Date: 20130524
  Receipt Date: 20130524
  Transmission Date: 20140414
  Serious: Yes (Other)
  Sender: FDA-Public Use
  Company Number: AUR-APL-2013-04252

PATIENT
  Age: 43 Year
  Sex: Female
  Weight: 65.76 kg

DRUGS (5)
  1. AMOXICILLIN+CLAVULANIC ACID [Suspect]
     Indication: CYSTITIS
     Dates: start: 20130409
  2. CELEXA [Suspect]
     Indication: ANXIETY
     Dates: start: 20130409
  3. CELEXA [Suspect]
     Indication: DEPRESSION
     Dates: start: 20130409
  4. TOVIAZ [Suspect]
     Indication: HYPERTONIC BLADDER
     Dates: start: 20130415
  5. ATIVAN (LORAZEPAM) [Concomitant]

REACTIONS (7)
  - Feeling abnormal [None]
  - Drug ineffective [None]
  - Cystitis [None]
  - Condition aggravated [None]
  - Withdrawal syndrome [None]
  - Agitation [None]
  - Insomnia [None]
